FAERS Safety Report 4274572-4 (Version None)
Quarter: 2004Q1

REPORT INFORMATION
  Report Type: 
  Country: None (occurrence: None)
  Receive Date: 20040115
  Receipt Date: 20040108
  Transmission Date: 20041129
  Serious: Yes (Death)
  Sender: FDA-Public Use
  Company Number: 2004-UK-00014UK

PATIENT
  Age: 69 Year
  Sex: Male

DRUGS (13)
  1. ASASANTIN RETARD (0015/0224) (ASASANTIN/GFR/)(NR)(ACETYLSALICYLIC ACID [Suspect]
     Indication: CARDIOVASCULAR DISORDER
     Dosage: TWICE
     Route: 048
     Dates: start: 19990917, end: 20031213
  2. ARCOXIA [Suspect]
     Indication: PAIN IN EXTREMITY
     Dosage: 120 MG 2 IN 1 D
     Route: 048
     Dates: start: 20031118, end: 20031213
  3. CELEBREX [Suspect]
     Indication: GASTROINTESTINAL HAEMORRHAGE
     Dosage: 100 MG MDU (NR)
     Route: 048
     Dates: start: 20030827, end: 20031213
  4. OMEPRAZOLE [Concomitant]
  5. PARACETAMOL (PARACETAMOL) [Concomitant]
  6. PHENYTOIN [Concomitant]
  7. RAMIPRIL [Concomitant]
  8. TEMAZEPAM [Concomitant]
  9. XATRAL XL (ALFUZOSIN HYDROCHLORIDE) [Concomitant]
  10. DOMPERIDONE (DOMEPERIDONE) [Concomitant]
  11. ANGITIL SR [Concomitant]
  12. MONOMAX (ISOSORBIDE MONONITRATE) [Concomitant]
  13. CO-CODAMOL (PANADEINE CO) [Concomitant]

REACTIONS (2)
  - GASTROINTESTINAL HAEMORRHAGE [None]
  - HAEMOGLOBIN DECREASED [None]
